FAERS Safety Report 26074123 (Version 1)
Quarter: 2025Q4

REPORT INFORMATION
  Report Type: Spontaneous
  Country: US (occurrence: US)
  Receive Date: 20251121
  Receipt Date: 20251121
  Transmission Date: 20260118
  Serious: No
  Sender: ABBVIE
  Company Number: US-ABBVIE-6557973

PATIENT
  Age: 46 Year
  Sex: Female
  Weight: 64 kg

DRUGS (4)
  1. BOTOX [Suspect]
     Active Substance: ONABOTULINUMTOXINA
     Indication: Migraine
     Dosage: TIME INTERVAL: AS NECESSARY: DOSE: 30 UNIT?FORM STRENGTH: 30 UNIT
     Route: 030
     Dates: start: 20251031, end: 20251031
  2. UBRELVY [Concomitant]
     Active Substance: UBROGEPANT
     Indication: Migraine
  3. MAGNESIUM [Concomitant]
     Active Substance: MAGNESIUM
     Indication: Mineral supplementation
  4. VITAMIN B2 [Concomitant]
     Active Substance: RIBOFLAVIN
     Indication: Vitamin supplementation

REACTIONS (2)
  - Rash [Not Recovered/Not Resolved]
  - Pruritus [Recovering/Resolving]

NARRATIVE: CASE EVENT DATE: 20251112
